FAERS Safety Report 9253700 (Version 2)
Quarter: 2013Q2

REPORT INFORMATION
  Report Type: Spontaneous
  Country: US (occurrence: US)
  Receive Date: 20130425
  Receipt Date: 20130521
  Transmission Date: 20140414
  Serious: No
  Sender: FDA-Public Use
  Company Number: US-009507513-1304USA013837

PATIENT
  Age: 35 Year
  Sex: Female

DRUGS (2)
  1. ASMANEX TWISTHALER [Suspect]
     Indication: ASTHMA
     Dosage: 1 INHALATION TWICE DAILY
     Route: 055
     Dates: start: 20130227
  2. PROAIR (ALBUTEROL SULFATE) [Concomitant]
     Dosage: UNK, PRN

REACTIONS (3)
  - Cough [Recovered/Resolved]
  - Product quality issue [Unknown]
  - Drug dose omission [Unknown]
